FAERS Safety Report 23539226 (Version 1)
Quarter: 2024Q1

REPORT INFORMATION
  Report Type: Spontaneous
  Country: US (occurrence: US)
  Receive Date: 20240219
  Receipt Date: 20240219
  Transmission Date: 20240410
  Serious: No
  Sender: FDA-Public Use
  Company Number: US-CTI BIOPHARMA-2023US04382

PATIENT

DRUGS (16)
  1. VONJO [Suspect]
     Active Substance: PACRITINIB
     Indication: Myeloproliferative neoplasm
     Dosage: 200 MG, BID
     Route: 048
     Dates: start: 20230206
  2. ASPIRIN [Concomitant]
     Active Substance: ASPIRIN
  3. AMBIEN [Concomitant]
     Active Substance: ZOLPIDEM TARTRATE
  4. AUGMENTIN [Concomitant]
     Active Substance: AMOXICILLIN\CLAVULANATE POTASSIUM
  5. AZITHROMYCIN [Concomitant]
     Active Substance: AZITHROMYCIN
  6. BACTRIM DS [Concomitant]
     Active Substance: SULFAMETHOXAZOLE\TRIMETHOPRIM
  7. CLOPIDOGREL [Concomitant]
     Active Substance: CLOPIDOGREL BISULFATE
  8. MEGESTROL [Concomitant]
     Active Substance: MEGESTROL
  9. MEN^S MULTI [ASCORBIC ACID;BETACAROTENE;CALCIUM;CHROMIC CHLORIDE;COLEC [Concomitant]
  10. METOPROLOL [Concomitant]
     Active Substance: METOPROLOL
  11. VITAMINS [Concomitant]
     Active Substance: VITAMINS
  12. NYSTATIN [Concomitant]
     Active Substance: NYSTATIN
  13. OXYCODONE [Concomitant]
     Active Substance: OXYCODONE\OXYCODONE HYDROCHLORIDE
  14. CODEINE PHOSPHATE\PROMETHAZINE HYDROCHLORIDE [Concomitant]
     Active Substance: CODEINE PHOSPHATE\PROMETHAZINE HYDROCHLORIDE
  15. ROSUVASTATIN [Concomitant]
     Active Substance: ROSUVASTATIN
  16. TYLENOL PM [Concomitant]
     Active Substance: ACETAMINOPHEN\DIPHENHYDRAMINE

REACTIONS (3)
  - Weight decreased [Unknown]
  - Off label use [Unknown]
  - Pneumonia bacterial [Unknown]
